FAERS Safety Report 8343131-6 (Version None)
Quarter: 2012Q2

REPORT INFORMATION
  Report Type: 
  Country: None (occurrence: None)
  Receive Date: 20120503
  Receipt Date: 20120416
  Transmission Date: 20120825
  Serious: Yes (Disabling)
  Sender: FDA-Public Use
  Company Number: TCI2010A00591

PATIENT
  Age: 68 Year
  Sex: Female

DRUGS (8)
  1. BLOPRESS (CANDESARTAN CILEXETIL) [Concomitant]
  2. CALCIUM CHANNEL BLOCKERS [Concomitant]
  3. ACTOS [Suspect]
     Indication: TYPE 2 DIABETES MELLITUS
     Dosage: 15 MG (15 MG, 1 D)
     Route: 048
     Dates: start: 20090110
  4. KERLONE [Concomitant]
  5. LIPIDIL [Concomitant]
  6. BASEN TABLET 0.3 (VOGLIBOSE) [Concomitant]
  7. AMARYL [Concomitant]
  8. CHOLESTEROL- AND TRIGLYCERIDE REDUCERS [Concomitant]

REACTIONS (5)
  - BLOOD CREATININE INCREASED [None]
  - PROTEIN URINE PRESENT [None]
  - LABORATORY TEST ABNORMAL [None]
  - ALBUMIN URINE PRESENT [None]
  - LOW DENSITY LIPOPROTEIN INCREASED [None]
